FAERS Safety Report 9880831 (Version 1)
Quarter: 2014Q1

REPORT INFORMATION
  Report Type: Spontaneous
  Country: US (occurrence: None)
  Receive Date: 20140206
  Receipt Date: 20140206
  Transmission Date: 20141002
  Serious: Yes (Other)
  Sender: FDA-Public Use
  Company Number: None

PATIENT
  Age: 56 Year
  Sex: Male
  Weight: 114 kg

DRUGS (1)
  1. XARELTO 20MG JANSSEN [Suspect]
     Indication: EMBOLISM VENOUS
     Dosage: 1  DAILY WITH MEAL  ORAL
     Route: 048
     Dates: start: 20131007, end: 20140203

REACTIONS (1)
  - Deep vein thrombosis [None]
